FAERS Safety Report 24408879 (Version 1)
Quarter: 2024Q4

REPORT INFORMATION
  Report Type: Spontaneous
  Country: FR (occurrence: FR)
  Receive Date: 20241007
  Receipt Date: 20241007
  Transmission Date: 20250115
  Serious: Yes (Congenital Anomaly)
  Sender: BIOGEN
  Company Number: None

PATIENT

DRUGS (1)
  1. TYSABRI [Suspect]
     Active Substance: NATALIZUMAB
     Indication: Maternal exposure timing unspecified
     Route: 050
     Dates: start: 2007

REACTIONS (2)
  - Osteochondrodysplasia [Recovered/Resolved]
  - Foetal malformation [Recovered/Resolved]

NARRATIVE: CASE EVENT DATE: 20240404
